FAERS Safety Report 5520046-X (Version None)
Quarter: 2007Q4

REPORT INFORMATION
  Report Type: 
  Country: None (occurrence: None)
  Receive Date: 20071116
  Receipt Date: 20071112
  Transmission Date: 20080405
  Serious: Yes (Other)
  Sender: FDA-Public Use
  Company Number: DE-AMGEN-US252428

PATIENT

DRUGS (2)
  1. ENBREL [Suspect]
     Indication: DRUG USE FOR UNKNOWN INDICATION
     Dosage: UNKNOWN
     Route: 058
     Dates: start: 20070101
  2. DICLO KD [Suspect]
     Dosage: SINGLE DOSE
     Route: 048
     Dates: start: 20071109

REACTIONS (1)
  - ANAPHYLACTIC SHOCK [None]
